FAERS Safety Report 10968777 (Version 1)
Quarter: 2015Q1

REPORT INFORMATION
  Report Type: Spontaneous
  Country: DE (occurrence: DE)
  Receive Date: 20150331
  Receipt Date: 20150331
  Transmission Date: 20150721
  Serious: Yes (Other)
  Sender: FDA-Public Use
  Company Number: DE-UCBSA-2014000420

PATIENT
  Age: 27 Year
  Sex: Female
  Weight: 105 kg

DRUGS (2)
  1. KEPPRA [Suspect]
     Active Substance: LEVETIRACETAM
     Indication: GENERALISED TONIC-CLONIC SEIZURE
     Dosage: 1250 MG, 2X/DAY (BID)
     Dates: start: 20140120
  2. ORFIRIL [Concomitant]
     Active Substance: VALPROIC ACID
     Indication: GENERALISED TONIC-CLONIC SEIZURE
     Dosage: DAILY DOSE: 450, 150-0-300
     Dates: end: 20140210

REACTIONS (3)
  - Caesarean section [Unknown]
  - Seizure [Unknown]
  - Pregnancy [Unknown]

NARRATIVE: CASE EVENT DATE: 2014
